FAERS Safety Report 8623307-0 (Version None)
Quarter: 2012Q3

REPORT INFORMATION
  Report Type: 
  Country: None (occurrence: None)
  Receive Date: 20120827
  Receipt Date: 20120815
  Transmission Date: 20120928
  Serious: Yes (Other)
  Sender: FDA-Public Use
  Company Number: US-ELI_LILLY_AND_COMPANY-US201207005582

PATIENT
  Sex: Male
  Weight: 29.932 kg

DRUGS (4)
  1. STRATTERA [Suspect]
     Dosage: 25 MG, UNK
     Dates: start: 20120721
  2. ZYRTEC [Concomitant]
     Dosage: 5 MG, PRN
     Route: 048
  3. STRATTERA [Suspect]
     Dosage: 10 MG, QD
     Route: 048
     Dates: start: 20120727
  4. STRATTERA [Suspect]
     Indication: ATTENTION DEFICIT/HYPERACTIVITY DISORDER
     Dosage: 25 MG, QD
     Route: 048
     Dates: start: 20120216, end: 20120628

REACTIONS (2)
  - PSYCHOTIC DISORDER [None]
  - ARACHNOPHOBIA [None]
